FAERS Safety Report 8336569-4 (Version None)
Quarter: 2012Q1

REPORT INFORMATION
  Report Type: 
  Country: None (occurrence: None)
  Receive Date: 20120329
  Receipt Date: 20100302
  Transmission Date: 20120608
  Serious: Yes (Hospitalization)
  Sender: FDA-Public Use
  Company Number: PHEH2010US02830

PATIENT

DRUGS (1)
  1. EXELON [Suspect]
     Dosage: 4.6MG

REACTIONS (1)
  - BRADYCARDIA [None]
